FAERS Safety Report 5357909-4 (Version None)
Quarter: 2007Q2

REPORT INFORMATION
  Report Type: 
  Country: None (occurrence: None)
  Receive Date: 20070612
  Receipt Date: 20070601
  Transmission Date: 20071010
  Serious: Yes (Other)
  Sender: FDA-Public Use
  Company Number: S07-USA-02405-01

PATIENT
  Age: 20 Year
  Sex: Female

DRUGS (1)
  1. LEXAPRO [Suspect]

REACTIONS (3)
  - CONVULSION [None]
  - DRUG EXPOSURE BEFORE PREGNANCY [None]
  - PREGNANCY [None]
